FAERS Safety Report 21763359 (Version 1)
Quarter: 2022Q4

REPORT INFORMATION
  Report Type: Spontaneous
  Country: US (occurrence: US)
  Receive Date: 20221221
  Receipt Date: 20221221
  Transmission Date: 20230113
  Serious: Yes (Hospitalization)
  Sender: FDA-Public Use
  Company Number: US-BRISTOL-MYERS SQUIBB COMPANY-2022-156145

PATIENT
  Age: 78 Year
  Sex: Female
  Weight: 63.5 kg

DRUGS (1)
  1. REVLIMID [Suspect]
     Active Substance: LENALIDOMIDE
     Indication: Plasma cell myeloma
     Dosage: FREQUENCY- DAILY DAYS 1-28 EVERY 28 DAYS
     Route: 048
     Dates: start: 20180704

REACTIONS (2)
  - Respiratory tract congestion [Unknown]
  - Off label use [Unknown]
